FAERS Safety Report 10956841 (Version 3)
Quarter: 2015Q3

REPORT INFORMATION
  Report Type: Spontaneous
  Country: JP (occurrence: JP)
  Receive Date: 20150326
  Receipt Date: 20150713
  Transmission Date: 20151125
  Serious: Yes (Hospitalization)
  Sender: FDA-Public Use
  Company Number: JP-ROCHE-1556612

PATIENT
  Age: 80 Year
  Sex: Male
  Weight: 56.1 kg

DRUGS (10)
  1. VITADAN [Concomitant]
     Route: 065
     Dates: end: 20150310
  2. RIBOFLAVIN [Concomitant]
     Active Substance: RIBOFLAVIN
  3. AZILSARTAN KAMEDOXOMIL [Concomitant]
     Active Substance: AZILSARTAN KAMEDOXOMIL
  4. PYRIDOXAL PHOSPHATE [Concomitant]
     Active Substance: PYRIDOXAL PHOSPHATE
  5. LUCENTIS [Suspect]
     Active Substance: RANIBIZUMAB
     Indication: RETINAL VEIN OCCLUSION
     Route: 050
     Dates: start: 20140318
  6. LIMARMONE [Concomitant]
     Route: 065
     Dates: end: 20150408
  7. LUCENTIS [Suspect]
     Active Substance: RANIBIZUMAB
     Dosage: FOURTH DOSE
     Route: 050
     Dates: start: 20141218, end: 20141218
  8. HYDROXOCOBALAMIN ACETATE. [Concomitant]
     Active Substance: HYDROXOCOBALAMIN ACETATE
  9. PLAVIX [Concomitant]
     Active Substance: CLOPIDOGREL BISULFATE
     Route: 065
     Dates: end: 20150408
  10. LOTRIGA [Concomitant]
     Active Substance: OMEGA-3-ACID ETHYL ESTERS
     Route: 065
     Dates: end: 20150408

REACTIONS (2)
  - Cerebral infarction [Recovered/Resolved]
  - Hypertension [Unknown]

NARRATIVE: CASE EVENT DATE: 20150309
